FAERS Safety Report 4929558-0 (Version None)
Quarter: 2006Q1

REPORT INFORMATION
  Report Type: 
  Country: None (occurrence: None)
  Receive Date: 20060224
  Receipt Date: 20060210
  Transmission Date: 20060701
  Serious: Yes (Death, Other)
  Sender: FDA-Public Use
  Company Number: 2004S1003546

PATIENT
  Age: 9 Year
  Sex: Male

DRUGS (4)
  1. MERCAPTAMINE BITARTRATE (MERCAPTAMINE BITARTRATE) (50 MG) [Suspect]
     Indication: CYSTINOSIS
     Dosage: SEE IMAGE
     Dates: start: 19600501, end: 20030101
  2. MERCAPTAMINE BITARTRATE (MERCAPTAMINE BITARTRATE) (50 MG) [Suspect]
     Indication: CYSTINOSIS
     Dosage: SEE IMAGE
     Dates: end: 20041101
  3. MERCAPTAMINE BITARTRATE (MERCAPTAMINE BITARTRATE) (50 MG) [Suspect]
     Indication: CYSTINOSIS
     Dosage: SEE IMAGE
     Dates: start: 20040301
  4. CALCIUM GLUCONATE [Concomitant]

REACTIONS (34)
  - ANGIOPATHY [None]
  - ASTHENIA [None]
  - BIOPSY SKIN ABNORMAL [None]
  - BLISTER [None]
  - BLOOD CALCIUM DECREASED [None]
  - BLOOD CREATININE INCREASED [None]
  - CEREBRAL ISCHAEMIA [None]
  - CLONUS [None]
  - COMPLEMENT FACTOR C3 DECREASED [None]
  - COMPRESSION FRACTURE [None]
  - CONFUSIONAL STATE [None]
  - CONVULSION [None]
  - DERMATITIS [None]
  - DIFFICULTY IN WALKING [None]
  - DYSARTHRIA [None]
  - EHLERS-DANLOS SYNDROME [None]
  - HAEMOGLOBIN DECREASED [None]
  - HEMIPLEGIA [None]
  - HYPERCALCAEMIA [None]
  - IATROGENIC INJURY [None]
  - LOSS OF CONSCIOUSNESS [None]
  - MEAN CELL VOLUME INCREASED [None]
  - MUSCLE TWITCHING [None]
  - MUSCULAR WEAKNESS [None]
  - OSTEOPENIA [None]
  - PAIN IN EXTREMITY [None]
  - PETECHIAE [None]
  - REFLEXES ABNORMAL [None]
  - SKIN HAEMORRHAGE [None]
  - SKIN LESION [None]
  - SKIN STRIAE [None]
  - SOMNOLENCE [None]
  - STARING [None]
  - TELANGIECTASIA [None]
